FAERS Safety Report 10085054 (Version 1)
Quarter: 2014Q2

REPORT INFORMATION
  Report Type: Spontaneous
  Country: GB (occurrence: GB)
  Receive Date: 20140417
  Receipt Date: 20140417
  Transmission Date: 20141212
  Serious: Yes (Hospitalization, Other)
  Sender: FDA-Public Use
  Company Number: GB-PFIZER INC-2014106034

PATIENT
  Age: 67 Year
  Sex: Male

DRUGS (16)
  1. NOVOMIX [Concomitant]
     Dosage: 10 IU, 1X/DAY 10 UNITS AT TEATIME
  2. WARFARIN [Concomitant]
     Dosage: UNK
  3. ALLOPURINOL [Concomitant]
     Dosage: 100 MG, 1X/DAY AT NIGHT
  4. AMITRIPTYLINE [Concomitant]
     Dosage: 50 MG, 1X/DAY AT NIGHT
  5. BISOPROLOL [Concomitant]
     Dosage: 5 MG, 2X/DAY
  6. DIGOXIN [Concomitant]
     Dosage: 125 UG, 1X/DAY
  7. RANITIDINE [Concomitant]
     Dosage: 150 MG, 2X/DAY
  8. SAXAGLIPTIN [Concomitant]
     Dosage: 5 MG, 2X/DAY
  9. VICTOZA [Concomitant]
     Dosage: 1.2 MG, 1X/DAY AT LUNCHTIME
  10. EPLERENONE [Suspect]
     Indication: LEFT VENTRICULAR DYSFUNCTION
     Dosage: 25 MG, 1X/DAY
     Route: 048
  11. RAMIPRIL [Suspect]
     Indication: LEFT VENTRICULAR DYSFUNCTION
     Dosage: 5 MG, 2X/DAY
     Route: 048
  12. FUROSEMIDE SODIUM [Suspect]
     Indication: LEFT VENTRICULAR DYSFUNCTION
     Dosage: 120 MG, (120 MG, 40 MG 2 MORNING AND ONE AT LUNCHTIME)
     Route: 048
  13. ORAMORPH [Suspect]
     Indication: BACK PAIN
     Dosage: 10 MG, 4X/DAY 10 MG PRN QDS BUT POSSIBLE INCREASE IN DOSES PRIOR TO ADMISSION TO HOSPITAL
     Route: 048
  14. ZOMORPH [Suspect]
     Indication: BACK PAIN
     Dosage: 30 MG, (30 MG, 20MG MR AM AND 10MG MR AT NIGHT)
     Route: 048
  15. ATORVASTATIN [Concomitant]
     Dosage: 40 MG, 1X/DAY AT NIGHT
  16. METFORMIN [Concomitant]
     Dosage: 1 G, 2X/DAY 1G IN THE MORNING AND EVENING

REACTIONS (5)
  - Toxicity to various agents [Recovered/Resolved]
  - Renal failure acute [Recovered/Resolved]
  - Lethargy [Recovered/Resolved]
  - Escherichia sepsis [Recovered/Resolved]
  - Vomiting [Recovered/Resolved]
